FAERS Safety Report 17366098 (Version 2)
Quarter: 2020Q1

REPORT INFORMATION
  Report Type: Spontaneous
  Country: RO (occurrence: RO)
  Receive Date: 20200204
  Receipt Date: 20200206
  Transmission Date: 20200409
  Serious: Yes (Other)
  Sender: FDA-Public Use
  Company Number: RO-BRISTOL-MYERS SQUIBB COMPANY-BMS-2020-008339

PATIENT
  Sex: Male

DRUGS (1)
  1. ELIQUIS [Suspect]
     Active Substance: APIXABAN
     Indication: RENAL VEIN THROMBOSIS
     Dosage: 5 MILLIGRAM
     Route: 065

REACTIONS (2)
  - Renal vein thrombosis [Unknown]
  - Intentional product use issue [Unknown]
